FAERS Safety Report 24318203 (Version 3)
Quarter: 2024Q4

REPORT INFORMATION
  Report Type: Spontaneous
  Country: CN (occurrence: CN)
  Receive Date: 20240913
  Receipt Date: 20241029
  Transmission Date: 20250115
  Serious: Yes (Other)
  Sender: MERCK
  Company Number: CN-009507513-2409CHN002174

PATIENT
  Age: 62 Year
  Sex: Male
  Weight: 60 kg

DRUGS (12)
  1. CILASTATIN SODIUM\IMIPENEM [Suspect]
     Active Substance: CILASTATIN SODIUM\IMIPENEM
     Dosage: 1 GRAM, Q8H
     Route: 041
     Dates: start: 20231008, end: 20231016
  2. CILASTATIN SODIUM\IMIPENEM [Suspect]
     Active Substance: CILASTATIN SODIUM\IMIPENEM
     Dosage: 0.5 GRAM, Q8H
     Route: 041
     Dates: start: 20231017, end: 20231017
  3. CILASTATIN SODIUM\IMIPENEM [Suspect]
     Active Substance: CILASTATIN SODIUM\IMIPENEM
     Dosage: 0.5 GRAM, ONCE
     Route: 041
     Dates: start: 20231018, end: 20231018
  4. VORICONAZOLE [Suspect]
     Active Substance: VORICONAZOLE
     Indication: Bronchopulmonary aspergillosis
     Dosage: 0.2 GRAM, Q12H
     Route: 048
     Dates: start: 202308, end: 20231016
  5. VALPROATE SODIUM [Suspect]
     Active Substance: VALPROATE SODIUM
     Indication: Epilepsy
     Dosage: 2 GRAM
     Dates: start: 20231016, end: 20231017
  6. COBLOPASVIR HYDROCHLORIDE [Concomitant]
     Indication: Hepatitis C
     Dosage: 60 MILLIGRAM, HS
     Route: 048
     Dates: start: 2023
  7. SOFOSBUVIR [Concomitant]
     Active Substance: SOFOSBUVIR
     Indication: Hepatitis C
     Dosage: 0.4 GRAM, HS
     Route: 048
     Dates: start: 2023
  8. LINEZOLID [Concomitant]
     Active Substance: LINEZOLID
     Indication: Nocardiosis
     Dosage: 0.6 GRAM, Q12H
     Route: 041
     Dates: start: 20231008
  9. SULFAMETHOXAZOLE [Concomitant]
     Active Substance: SULFAMETHOXAZOLE
     Indication: Nocardiosis
     Dosage: 0.96 GRAM, BID
     Route: 048
     Dates: start: 20231008
  10. ALBUMIN HUMAN [Concomitant]
     Active Substance: ALBUMIN HUMAN
     Dosage: 20 GRAM, QD
     Route: 041
     Dates: start: 20231008
  11. HUMAN IMMUNOGLOBULIN G [Concomitant]
     Active Substance: HUMAN IMMUNOGLOBULIN G
     Dosage: 20 GRAM,ADMINISTERED ONCE EACH ON THE THIRD AND FOURTH DAYS
     Route: 041
     Dates: start: 20231008
  12. BUCINNAZINE HYDROCHLORIDE [Concomitant]
     Active Substance: BUCINNAZINE HYDROCHLORIDE
     Dosage: 100 MILLIGRAM, PRN
     Route: 030
     Dates: start: 20231008

REACTIONS (3)
  - Epilepsy [Recovered/Resolved]
  - Altered state of consciousness [Recovered/Resolved]
  - Labelled drug-drug interaction issue [Unknown]

NARRATIVE: CASE EVENT DATE: 20231016
